FAERS Safety Report 6792565-X (Version None)
Quarter: 2010Q2

REPORT INFORMATION
  Report Type: 
  Country: None (occurrence: None)
  Receive Date: 20100624
  Receipt Date: 20080903
  Transmission Date: 20101027
  Serious: No
  Sender: FDA-Public Use
  Company Number: US-PFIZER INC-2008069216

PATIENT
  Sex: Female
  Weight: 63.636 kg

DRUGS (6)
  1. AROMASIN [Suspect]
     Indication: BREAST CANCER
     Dates: start: 20080701
  2. VITAMINS [Concomitant]
  3. GLUCOSAMINE [Concomitant]
  4. VITAMIN D [Concomitant]
  5. ENALAPRIL MALEATE [Concomitant]
  6. TOPROL-XL [Concomitant]

REACTIONS (2)
  - NAIL DISCOLOURATION [None]
  - NAIL DISORDER [None]
